FAERS Safety Report 6016984-4 (Version None)
Quarter: 2008Q4

REPORT INFORMATION
  Report Type: 
  Country: None (occurrence: None)
  Receive Date: 20081223
  Receipt Date: 20081216
  Transmission Date: 20090506
  Serious: Yes (Other)
  Sender: FDA-Public Use
  Company Number: BR-RANBAXY-2008R5-20063

PATIENT

DRUGS (2)
  1. ISOTRETINOINA [Suspect]
     Indication: ACNE
     Dosage: UNK
     Route: 048
  2. ISOTRETINOIN [Suspect]
     Indication: ACNE

REACTIONS (3)
  - ANOREXIA [None]
  - PROTHROMBIN TIME PROLONGED [None]
  - WEIGHT DECREASED [None]
